FAERS Safety Report 8446500-9 (Version None)
Quarter: 2012Q2

REPORT INFORMATION
  Report Type: 
  Country: None (occurrence: None)
  Receive Date: 20120618
  Receipt Date: 20120426
  Transmission Date: 20120825
  Serious: Yes (Other)
  Sender: FDA-Public Use
  Company Number: US-TEVA-335299USA

PATIENT
  Sex: Female
  Weight: 65.83 kg

DRUGS (12)
  1. PREGABALIN [Concomitant]
     Dosage: 75 MILLIGRAM;
     Route: 048
  2. ALBUTEROL [Concomitant]
     Indication: ASTHMA
  3. ESOMEPRAZOLE MAGNESIUM [Concomitant]
     Dosage: 40 MILLIGRAM;
     Route: 048
  4. ALPRAZOLAM [Concomitant]
     Dosage: 2 MILLIGRAM;
     Route: 048
  5. ZIPSOR [Concomitant]
     Dosage: 50 MILLIGRAM;
     Route: 048
  6. ACTIQ [Suspect]
     Indication: BACK DISORDER
     Route: 002
  7. METHADONE HCL [Suspect]
     Indication: NECK INJURY
  8. LEVOTHYROXINE SODIUM [Concomitant]
     Dosage: .2 MILLIGRAM;
     Route: 048
  9. ACTIQ [Suspect]
     Indication: NECK INJURY
  10. METHADONE HCL [Suspect]
     Indication: BACK DISORDER
     Route: 048
     Dates: start: 19990101
  11. BUDESONIDE W/FORMOTEROL FUMARATE [Concomitant]
     Indication: ASTHMA
  12. MONTELUKAST [Concomitant]
     Indication: ASTHMA
     Dosage: 10 MILLIGRAM;
     Route: 048

REACTIONS (5)
  - SPEECH DISORDER [None]
  - PYREXIA [None]
  - WITHDRAWAL SYNDROME [None]
  - OFF LABEL USE [None]
  - DRUG PRESCRIBING ERROR [None]
